FAERS Safety Report 4399680-9 (Version None)
Quarter: 2004Q3

REPORT INFORMATION
  Report Type: 
  Country: None (occurrence: None)
  Receive Date: 20040716
  Receipt Date: 20040625
  Transmission Date: 20050211
  Serious: Yes (Death)
  Sender: FDA-Public Use
  Company Number: AU-ROCHE-371895

PATIENT
  Age: 24 Year
  Sex: Male
  Weight: 88 kg

DRUGS (3)
  1. ROACCUTANE [Suspect]
     Indication: ACNE
     Route: 048
     Dates: start: 20040506
  2. ROACCUTANE [Suspect]
     Route: 048
     Dates: start: 20040224
  3. ROACCUTANE [Suspect]
     Route: 048
     Dates: start: 20020615, end: 20020615

REACTIONS (3)
  - CONVULSION [None]
  - DEEP VEIN THROMBOSIS [None]
  - PULMONARY EMBOLISM [None]
